FAERS Safety Report 4393235-8 (Version None)
Quarter: 2004Q3

REPORT INFORMATION
  Report Type: 
  Country: None (occurrence: None)
  Receive Date: 20040701
  Receipt Date: 20040506
  Transmission Date: 20050211
  Serious: Yes (Other)
  Sender: FDA-Public Use
  Company Number: JP-JNJFOC-20040300408

PATIENT
  Age: 75 Year
  Sex: Female

DRUGS (10)
  1. REMICADE [Suspect]
     Indication: RHEUMATOID ARTHRITIS
     Dosage: 3 MG/KG, INTRAVENOUS
     Route: 042
     Dates: start: 20031218
  2. METHOTREXATE [Concomitant]
  3. FOLIC ACID [Concomitant]
  4. MELOXICAM (MELOXICAM) [Concomitant]
  5. MIZORIBINE (MIZORIBINE) [Concomitant]
  6. PREDNISOLONE [Concomitant]
  7. SALAZOSULFAPYRIDINE (SULFASALAZINE) [Concomitant]
  8. ARBEKACIN SULFATE (ARBEKACIN SULFATE) [Concomitant]
  9. LEUCOVORIN CALCIUM [Concomitant]
  10. MEROPENEM TRIHYDRATE (MEROPENEM) [Concomitant]

REACTIONS (2)
  - MALIGNANT PLEURAL EFFUSION [None]
  - PLEURISY [None]
